FAERS Safety Report 4366414-3 (Version None)
Quarter: 2004Q2

REPORT INFORMATION
  Report Type: 
  Country: None (occurrence: None)
  Receive Date: 20040527
  Receipt Date: 20040310
  Transmission Date: 20050107
  Serious: Yes (Other)
  Sender: FDA-Public Use
  Company Number: US-BRISTOL-MYERS SQUIBB COMPANY-12531034

PATIENT

DRUGS (3)
  1. ERBITUX [Suspect]
     Indication: COLORECTAL CANCER METASTATIC
     Dosage: 920 MG
     Route: 042
     Dates: start: 20040310, end: 20040310
  2. IRINOTECAN [Concomitant]
     Indication: COLORECTAL CANCER METASTATIC
  3. DIPHENHYDRAMINE HCL [Concomitant]
     Indication: PREMEDICATION
     Dates: start: 20040310, end: 20040310

REACTIONS (1)
  - URTICARIA [None]
